FAERS Safety Report 9193899 (Version 1)
Quarter: 2013Q1

REPORT INFORMATION
  Report Type: Spontaneous
  Country: US (occurrence: None)
  Receive Date: 20130325
  Receipt Date: 20130325
  Transmission Date: 20140127
  Serious: Yes (Other)
  Sender: FDA-Public Use
  Company Number: US-011156

PATIENT
  Age: 51 Year
  Sex: Female
  Weight: 66.23 kg

DRUGS (5)
  1. LYSTEDA [Suspect]
     Indication: MENORRHAGIA
     Dosage: ,2 TABLETS THREE TIMES A DAY ORAL)
     Route: 048
     Dates: start: 20130313
  2. INSULIN [Concomitant]
  3. LISINOPRIL [Concomitant]
  4. L-LYSINE /00919901/ [Concomitant]
  5. MULTIVITAMIN /02358601/ [Concomitant]

REACTIONS (1)
  - Blood glucose fluctuation [None]
